FAERS Safety Report 23908021 (Version 1)
Quarter: 2024Q2

REPORT INFORMATION
  Report Type: Spontaneous
  Country: JP (occurrence: JP)
  Receive Date: 20240528
  Receipt Date: 20240528
  Transmission Date: 20240716
  Serious: Yes (Other)
  Sender: FDA-Public Use
  Company Number: JP-PFIZER INC-202400173866

PATIENT
  Sex: Male

DRUGS (1)
  1. INLYTA [Suspect]
     Active Substance: AXITINIB
     Dosage: UNK
     Route: 048
     Dates: start: 202309, end: 2024

REACTIONS (7)
  - Pharyngeal stenosis [Unknown]
  - Malaise [Unknown]
  - Dysphonia [Recovered/Resolved]
  - Disease recurrence [Recovered/Resolved]
  - Haemoptysis [Recovered/Resolved]
  - Wheezing [Unknown]
  - Dyspnoea exertional [Unknown]

NARRATIVE: CASE EVENT DATE: 20240101
